FAERS Safety Report 4283014-4 (Version None)
Quarter: 2004Q1

REPORT INFORMATION
  Report Type: 
  Country: None (occurrence: None)
  Receive Date: 20040130
  Receipt Date: 20031016
  Transmission Date: 20041129
  Serious: Yes (Disabling)
  Sender: FDA-Public Use
  Company Number: WAES 0310USA01948

PATIENT
  Age: 43 Year
  Sex: Male
  Weight: 118 kg

DRUGS (19)
  1. NORVASC [Concomitant]
     Indication: HYPERTENSION
     Dates: start: 20000530, end: 20010628
  2. LOTREL [Concomitant]
  3. ASPIRIN [Concomitant]
  4. LIPITOR [Concomitant]
     Indication: BLOOD TRIGLYCERIDES INCREASED
     Dates: start: 20000629, end: 20021007
  5. LIPITOR [Concomitant]
     Indication: BLOOD CHOLESTEROL INCREASED
     Dates: start: 20000629, end: 20021007
  6. PLAVIX [Concomitant]
  7. NEXIUM [Concomitant]
     Indication: GASTROOESOPHAGEAL REFLUX DISEASE
  8. ZETIA [Concomitant]
     Indication: BLOOD TRIGLYCERIDES INCREASED
     Route: 048
     Dates: start: 20000101
  9. TRICOR [Concomitant]
     Indication: BLOOD TRIGLYCERIDES INCREASED
     Dates: start: 20000101
  10. NEURONTIN [Concomitant]
  11. IBUPROFEN [Concomitant]
  12. METHOCARBAMOL [Concomitant]
  13. TOPROL-XL [Concomitant]
     Indication: HYPERTENSION
     Dates: start: 20000101
  14. PRILOSEC [Concomitant]
     Indication: GASTROOESOPHAGEAL REFLUX DISEASE
  15. PAXIL [Concomitant]
     Indication: DEPRESSION
     Dates: start: 20000101
  16. VIOXX [Suspect]
     Indication: PAIN IN EXTREMITY
     Route: 048
     Dates: start: 20000701
  17. VIOXX [Suspect]
     Route: 048
     Dates: start: 20010201, end: 20020301
  18. VIOXX [Suspect]
     Route: 048
     Dates: start: 20020321
  19. ZOCOR [Concomitant]
     Indication: BLOOD CHOLESTEROL INCREASED
     Route: 048
     Dates: start: 20000101, end: 20010312

REACTIONS (27)
  - ANXIETY [None]
  - ATHEROSCLEROSIS [None]
  - BACK PAIN [None]
  - CEREBRAL INFARCTION [None]
  - CEREBROVASCULAR ACCIDENT [None]
  - CHEST PAIN [None]
  - DEPRESSION [None]
  - DIABETES MELLITUS NON-INSULIN-DEPENDENT [None]
  - DYSLIPIDAEMIA [None]
  - DYSPHAGIA [None]
  - DYSPNOEA [None]
  - FATIGUE [None]
  - GASTROOESOPHAGEAL REFLUX DISEASE [None]
  - HYPERCHOLESTEROLAEMIA [None]
  - HYPERTENSION [None]
  - HYPERTRIGLYCERIDAEMIA [None]
  - IRRITABILITY [None]
  - LACUNAR INFARCTION [None]
  - OEDEMA PERIPHERAL [None]
  - PAIN [None]
  - SLEEP APNOEA SYNDROME [None]
  - SPUTUM DISCOLOURED [None]
  - TREMOR [None]
  - UPPER RESPIRATORY TRACT INFECTION [None]
  - VASCULAR DEMENTIA [None]
  - WEIGHT INCREASED [None]
  - WHEEZING [None]
